FAERS Safety Report 12384450 (Version 1)
Quarter: 2016Q2

REPORT INFORMATION
  Report Type: Spontaneous
  Country: US (occurrence: US)
  Receive Date: 20160519
  Receipt Date: 20160519
  Transmission Date: 20160815
  Serious: No
  Sender: FDA-Public Use
  Company Number: US-JNJFOC-20160500769

PATIENT
  Age: 91 Year
  Sex: Male

DRUGS (4)
  1. PLAVIX [Concomitant]
     Active Substance: CLOPIDOGREL BISULFATE
     Route: 065
  2. XTANDI [Suspect]
     Active Substance: ENZALUTAMIDE
     Indication: HORMONE-REFRACTORY PROSTATE CANCER
     Dosage: REGIMEN #1
     Route: 065
     Dates: start: 20160211
  3. PREDNISONE. [Suspect]
     Active Substance: PREDNISONE
     Indication: PRODUCT USED FOR UNKNOWN INDICATION
     Dosage: REGIMEN #1
     Route: 065
     Dates: start: 20160211
  4. ZYTIGA [Suspect]
     Active Substance: ABIRATERONE ACETATE
     Indication: PRODUCT USED FOR UNKNOWN INDICATION
     Dosage: REGIMEN #1
     Route: 048
     Dates: start: 20160211

REACTIONS (8)
  - Blood bilirubin abnormal [Unknown]
  - Somnolence [Unknown]
  - Fatigue [Unknown]
  - Constipation [Unknown]
  - Diarrhoea [Unknown]
  - Blood glucose abnormal [Unknown]
  - Prostatic specific antigen increased [Unknown]
  - Confusional state [Unknown]

NARRATIVE: CASE EVENT DATE: 20160218
